FAERS Safety Report 4331403-1 (Version None)
Quarter: 2004Q1

REPORT INFORMATION
  Report Type: 
  Country: None (occurrence: None)
  Receive Date: 20040329
  Receipt Date: 20040318
  Transmission Date: 20041129
  Serious: Yes (Hospitalization, Other)
  Sender: FDA-Public Use
  Company Number: US-JNJFOC-20040304100

PATIENT
  Age: 17 Year
  Sex: Male

DRUGS (2)
  1. CONCERTA [Suspect]
     Indication: ATTENTION DEFICIT/HYPERACTIVITY DISORDER
     Dosage: 54 MG, 1 IN 1 DAY, ORAL
     Route: 048
     Dates: start: 20040316, end: 20040318
  2. REMERON (MITAZAPINE) [Concomitant]

REACTIONS (4)
  - CEREBRAL HAEMORRHAGE [None]
  - CEREBROVASCULAR ACCIDENT [None]
  - HEADACHE [None]
  - HEMIPLEGIA [None]
